FAERS Safety Report 20519734 (Version 1)
Quarter: 2022Q1

REPORT INFORMATION
  Report Type: Spontaneous
  Country: US (occurrence: None)
  Receive Date: 20220225
  Receipt Date: 20220225
  Transmission Date: 20220423
  Serious: Yes (unspecified)
  Sender: FDA-Public Use
  Company Number: None

PATIENT
  Age: 50 Year
  Sex: Female
  Weight: 71.5 kg

DRUGS (2)
  1. GOLIMUMAB [Suspect]
     Active Substance: GOLIMUMAB
     Indication: Arthritis
     Dosage: OTHER FREQUENCY : ONE TIME INFUSION;?
     Route: 041
     Dates: start: 20220224, end: 20220224
  2. Duiphenhydramine 25 mg IVP [Concomitant]
     Dates: start: 20220224, end: 20220224

REACTIONS (1)
  - Pruritus [None]

NARRATIVE: CASE EVENT DATE: 20220224
